FAERS Safety Report 5316489-X (Version None)
Quarter: 2007Q2

REPORT INFORMATION
  Report Type: 
  Country: None (occurrence: None)
  Receive Date: 20070430
  Receipt Date: 20070416
  Transmission Date: 20071010
  Serious: Yes (Life-Threatening, Hospitalization)
  Sender: FDA-Public Use
  Company Number: T200700425

PATIENT
  Age: 57 Year
  Sex: Male

DRUGS (10)
  1. OPTIRAY 160 [Suspect]
     Indication: SCAN BRAIN
     Dosage: 65 ML, SINGLE, INTRAVENOUS
     Route: 042
     Dates: start: 20070416, end: 20070416
  2. PIPERACILLIN SODIUM [Concomitant]
  3. LANSOPRAZOLE [Concomitant]
  4. TULOBUTEROL (TULOBUTEROL) [Concomitant]
  5. LACTOMIN (LACTOMIN) [Concomitant]
  6. SODIUM CHLORIDE 0.9% [Concomitant]
  7. AMANTADINE HCL [Concomitant]
  8. VALPROATE SODIUM [Concomitant]
  9. CARBOCISTEINE LYSINE (CARBOCISTEINE LYSINE) [Concomitant]
  10. TIZANIDINE HCL [Concomitant]

REACTIONS (3)
  - ANAPHYLACTOID SHOCK [None]
  - BLOOD PRESSURE IMMEASURABLE [None]
  - OXYGEN SATURATION DECREASED [None]
